FAERS Safety Report 5608802-0 (Version None)
Quarter: 2008Q1

REPORT INFORMATION
  Report Type: 
  Country: None (occurrence: None)
  Receive Date: 20080129
  Receipt Date: 20080129
  Transmission Date: 20080703
  Serious: Yes (Hospitalization)
  Sender: FDA-Public Use
  Company Number: None

PATIENT
  Age: 60 Year
  Sex: Male
  Weight: 74.8435 kg

DRUGS (12)
  1. CISPLATIN [Suspect]
     Dosage: 30MG/M2
     Dates: start: 20071002, end: 20080122
  2. ERBITUX [Suspect]
     Dosage: 250 MG/M2
     Dates: start: 20071002, end: 20080122
  3. RADIATION THERAPY [Suspect]
     Dates: start: 20071208
  4. TEGRETOL [Concomitant]
  5. ZYLOPRIM [Concomitant]
  6. SYNTHROID [Concomitant]
  7. FENTANYL [Concomitant]
  8. XANAX [Concomitant]
  9. COMPAZINE [Concomitant]
  10. ZOFRAN [Concomitant]
  11. MAGNESIUM OXIDE [Concomitant]
  12. ROXICET LIQ [Concomitant]

REACTIONS (4)
  - CONFUSIONAL STATE [None]
  - HYPOXIA [None]
  - PNEUMONIA ASPIRATION [None]
  - RESPIRATORY RATE INCREASED [None]
